FAERS Safety Report 5290764-X (Version None)
Quarter: 2007Q2

REPORT INFORMATION
  Report Type: 
  Country: None (occurrence: None)
  Receive Date: 20070409
  Receipt Date: 20070402
  Transmission Date: 20071010
  Serious: Yes (Other)
  Sender: FDA-Public Use
  Company Number: JP-PFIZER INC-2007026743

PATIENT
  Age: 70 Year
  Sex: Male

DRUGS (1)
  1. ATARAX [Suspect]
     Indication: INSOMNIA
     Route: 042

REACTIONS (1)
  - INAPPROPRIATE ANTIDIURETIC HORMONE SECRETION [None]
